FAERS Safety Report 9008629 (Version 1)
Quarter: 2013Q1

REPORT INFORMATION
  Report Type: Spontaneous
  Country: DE (occurrence: DE)
  Receive Date: 20130111
  Receipt Date: 20130111
  Transmission Date: 20140127
  Serious: Yes (Hospitalization)
  Sender: FDA-Public Use
  Company Number: DE-ELI_LILLY_AND_COMPANY-DE200601005274

PATIENT
  Age: 17 Year
  Sex: Male
  Weight: 113 kg

DRUGS (4)
  1. OLANZAPINE [Suspect]
     Indication: SCHIZOAFFECTIVE DISORDER
     Dosage: 30 MG, DAILY (1/D)
     Route: 048
  2. OLANZAPINE [Suspect]
     Dosage: 400 MG, OTHER
     Route: 048
  3. CARBAMAZEPINE [Concomitant]
     Indication: SCHIZOAFFECTIVE DISORDER
     Dosage: 500 MG, DAILY (1/D)
  4. CARBAMAZEPINE [Concomitant]
     Dosage: 400 MG, DAILY (1/D)

REACTIONS (15)
  - Intentional overdose [Recovered/Resolved]
  - Prescribed overdose [Recovered/Resolved]
  - Suicide attempt [Recovered/Resolved]
  - Respiratory depression [Recovered/Resolved]
  - Loss of consciousness [Recovered/Resolved]
  - Blood pressure increased [Recovered/Resolved]
  - Heart rate increased [Recovered/Resolved]
  - White blood cell count increased [Recovered/Resolved]
  - C-reactive protein increased [Recovered/Resolved]
  - Body temperature increased [Recovered/Resolved]
  - Blood uric acid increased [Unknown]
  - Alanine aminotransferase increased [Unknown]
  - Gamma-glutamyltransferase increased [Unknown]
  - Blood triglycerides increased [Unknown]
  - Blood cholesterol increased [Unknown]
